FAERS Safety Report 7605202-9 (Version None)
Quarter: 2011Q3

REPORT INFORMATION
  Report Type: 
  Country: None (occurrence: None)
  Receive Date: 20110705
  Receipt Date: 20110620
  Transmission Date: 20111222
  Serious: Yes (Hospitalization)
  Sender: FDA-Public Use
  Company Number: 2011MA007765

PATIENT
  Age: 71 Year

DRUGS (4)
  1. ISONIAZID [Suspect]
     Indication: TUBERCULOSIS
  2. BISOPROLOL FUMARATE [Concomitant]
  3. ETHAMBUTOL HYDROCHLORIDE [Suspect]
     Indication: TUBERCULOSIS
  4. RIFAMPIN [Suspect]
     Indication: TUBERCULOSIS
     Dosage: 600 MG; QD;

REACTIONS (3)
  - CONDITION AGGRAVATED [None]
  - HYPERTENSION [None]
  - VENTRICULAR EXTRASYSTOLES [None]
